FAERS Safety Report 8598940-5 (Version None)
Quarter: 2012Q3

REPORT INFORMATION
  Report Type: 
  Country: None (occurrence: None)
  Receive Date: 20120816
  Receipt Date: 20120809
  Transmission Date: 20120928
  Serious: Yes (Other)
  Sender: FDA-Public Use
  Company Number: DE-ROCHE-1100982

PATIENT
  Sex: Male

DRUGS (2)
  1. CELLCEPT [Suspect]
     Indication: HEART TRANSPLANT
  2. TACROLIMUS [Suspect]
     Indication: HEART TRANSPLANT

REACTIONS (3)
  - SEPSIS [None]
  - TRANSPLANT REJECTION [None]
  - PANCREATITIS [None]
